FAERS Safety Report 4305307-4 (Version None)
Quarter: 2004Q1

REPORT INFORMATION
  Report Type: 
  Country: None (occurrence: None)
  Receive Date: 20040226
  Receipt Date: 20030407
  Transmission Date: 20041129
  Serious: Yes (Other)
  Sender: FDA-Public Use
  Company Number: US-BRISTOL-MYERS SQUIBB COMPANY-12233631

PATIENT
  Age: 77 Year
  Sex: Female
  Weight: 41 kg

DRUGS (5)
  1. TAXOL [Suspect]
     Indication: LUNG NEOPLASM MALIGNANT
     Route: 042
     Dates: start: 20030407, end: 20030407
  2. CARBOPLATIN [Concomitant]
     Dates: start: 20030407, end: 20030407
  3. BENADRYL [Concomitant]
     Indication: PREMEDICATION
     Route: 042
     Dates: start: 20030407, end: 20030407
  4. TAGAMET [Concomitant]
     Indication: PREMEDICATION
     Route: 042
     Dates: start: 20030407, end: 20030407
  5. DECADRON [Concomitant]
     Indication: PREMEDICATION
     Dates: start: 20030407, end: 20030407

REACTIONS (2)
  - DYSPNOEA [None]
  - HYPERSENSITIVITY [None]
